FAERS Safety Report 24446878 (Version 1)
Quarter: 2024Q4

REPORT INFORMATION
  Report Type: Spontaneous
  Country: US (occurrence: US)
  Receive Date: 20241016
  Receipt Date: 20241016
  Transmission Date: 20250114
  Serious: Yes (Other)
  Sender: NOVO NORDISK
  Company Number: US-NOVOPROD-1279397

PATIENT
  Age: 68 Year

DRUGS (1)
  1. RYBELSUS [Suspect]
     Active Substance: SEMAGLUTIDE
     Indication: Type 1 diabetes mellitus
     Dosage: UNK
     Route: 048
     Dates: start: 2023

REACTIONS (3)
  - Brain neoplasm [Unknown]
  - Visual field defect [Unknown]
  - Malaise [Unknown]

NARRATIVE: CASE EVENT DATE: 20240201
